FAERS Safety Report 7121785-X (Version None)
Quarter: 2010Q4

REPORT INFORMATION
  Report Type: 
  Country: None (occurrence: None)
  Receive Date: 20101124
  Receipt Date: 20101022
  Transmission Date: 20110411
  Serious: Yes (Hospitalization, Other)
  Sender: FDA-Public Use
  Company Number: JP-AMGEN-QUU434978

PATIENT

DRUGS (9)
  1. ENBREL [Suspect]
     Dosage: 25 MG, 2 TIMES/WK
     Route: 058
     Dates: start: 20090417, end: 20100813
  2. METHOTREXATE [Suspect]
     Dosage: UNK UNK, UNK
     Route: 048
     Dates: start: 20060901, end: 20100815
  3. METHOTREXATE [Suspect]
     Dosage: 2.5 MG, QWK
     Route: 048
     Dates: start: 20091027, end: 20100816
  4. METHOTREXATE [Suspect]
     Dosage: 4 MG UNSPECIFIED FREQUENCY
     Route: 048
     Dates: start: 20060901, end: 20100815
  5. PREDNISOLONE [Suspect]
     Dosage: 1.5 MG, QD
     Route: 048
     Dates: start: 20050301
  6. IRSOGLADINE MALEATE [Concomitant]
     Dosage: 4 MG, QD
     Route: 048
     Dates: start: 20060301
  7. FOLIAMIN [Concomitant]
     Dosage: 2 MG, QD
     Route: 048
     Dates: start: 20060901, end: 20090817
  8. BENET [Concomitant]
     Dosage: 17.5 MG, QWK
     Route: 048
     Dates: start: 20070901
  9. ALFACALCIDOL [Concomitant]
     Dosage: 1 A?G, QD
     Route: 048
     Dates: start: 20060301

REACTIONS (3)
  - NASOPHARYNGITIS [None]
  - ORGANISING PNEUMONIA [None]
  - PNEUMONIA BACTERIAL [None]
